FAERS Safety Report 14113437 (Version 1)
Quarter: 2017Q4

REPORT INFORMATION
  Report Type: Spontaneous
  Country: US (occurrence: US)
  Receive Date: 20171023
  Receipt Date: 20171023
  Transmission Date: 20180321
  Serious: No
  Sender: FDA-Public Use
  Company Number: US-TEVA-796584USA

PATIENT
  Sex: Male

DRUGS (5)
  1. ACETAMINOPHEN W/OXYCODONE [Concomitant]
     Active Substance: ACETAMINOPHEN\OXYCODONE HYDROCHLORIDE
     Dosage: 4 X 10-325
  2. MORPHINE [Concomitant]
     Active Substance: MORPHINE
     Dosage: 2 X 30 MG
  3. MELOXICAM. [Concomitant]
     Active Substance: MELOXICAM
     Dosage: 1 X 15 MG
  4. ACETAMINOPHEN W/OXYCODONE [Suspect]
     Active Substance: ACETAMINOPHEN\OXYCODONE HYDROCHLORIDE
     Indication: BACK PAIN
     Dosage: 325MG/10MG
     Route: 065
     Dates: start: 20170314, end: 20170515
  5. GABAPENTIN. [Concomitant]
     Active Substance: GABAPENTIN
     Dosage: 3 X 800 MG

REACTIONS (7)
  - Headache [Unknown]
  - Anxiety [Unknown]
  - Product substitution issue [Unknown]
  - Pollakiuria [Unknown]
  - Dizziness [Recovered/Resolved]
  - Drug ineffective [Unknown]
  - Nausea [Recovered/Resolved]
